FAERS Safety Report 8789909 (Version 2)
Quarter: 2012Q4

REPORT INFORMATION
  Report Type: 
  Country: US (occurrence: US)
  Receive Date: 20120917
  Receipt Date: 20121001
  Transmission Date: 20130627
  Serious: Yes (Other)
  Sender: FDA-Public Use
  Company Number: US-PFIZER INC-2012224514

PATIENT
  Age: 33 Year
  Sex: Female

DRUGS (4)
  1. EFFEXOR XR [Suspect]
     Dosage: 75 mg, 1x/day
     Route: 048
  2. ELAVIL [Concomitant]
     Dosage: 30 mg, 1x/day (3 tablets of 10mg, nightly)
     Route: 048
  3. BUSPAR [Concomitant]
     Dosage: 20 mg, 2x/day (2 tablets of 10 mg)
     Route: 048
  4. SEROQUEL [Concomitant]
     Dosage: 50 mg , 1x/day (0.5 tablet of 100 mg) (nightly)
     Route: 048

REACTIONS (3)
  - Bipolar I disorder [Unknown]
  - Anxiety [Unknown]
  - Depression [Unknown]
